FAERS Safety Report 26008594 (Version 1)
Quarter: 2025Q4

REPORT INFORMATION
  Report Type: Spontaneous
  Country: US (occurrence: US)
  Receive Date: 20251106
  Receipt Date: 20251106
  Transmission Date: 20260118
  Serious: Yes (Hospitalization, Other)
  Sender: FRESENIUS KABI
  Company Number: US-FreseniusKabi-FK202514654

PATIENT
  Age: 56 Year
  Sex: Female
  Weight: 50.1 kg

DRUGS (14)
  1. FLUOROURACIL [Suspect]
     Active Substance: FLUOROURACIL
     Indication: Colorectal cancer
     Dosage: 2400 MG/M2 Q2W (DAYS 1 AND 15 OF EACH 28-DAY CYCLE)?THERAPY DURATION: 1 DAY 22 HRS?FORM OF ADMINISTR
     Route: 042
  2. FLUOROURACIL [Suspect]
     Active Substance: FLUOROURACIL
     Dosage: 400 MILLIGRAM PER CUBIC METRE, DAYS 1 AND 15 OF EACH 28-DAY CYCLE?THERAPY DURATION: 4 DAYS 1 HR 22 M
     Route: 042
  3. FLUOROURACIL [Suspect]
     Active Substance: FLUOROURACIL
     Dosage: 2000 MILLIGRAM/SQ. METER, DAYS 1 AND 15 OF EACH 28 DAY CYCLE;?THERAPY DURATION: 3 DAYS?FORM OF ADMIN
     Route: 042
     Dates: start: 20250925, end: 20250927
  4. INCA-33890 [Suspect]
     Active Substance: INCA-33890
     Indication: Colorectal cancer
     Dosage: 900 MG Q2W (DAYS 1 AND 15 OF EACH 28-DAY CYCLE)?AT ?THERAPY DURATION: 1 HR 30 MIN?FOA-INFUSION
     Route: 042
  5. INCA-33890 [Suspect]
     Active Substance: INCA-33890
     Dosage: 900 MILLIGRAM, DAYS 1 AND 15 OF EACH 28-DAY CYCLE?THERAPY DURATION: 1 HR 30 MIN?FOA-INFUSION
     Route: 042
  6. INCA-33890 [Suspect]
     Active Substance: INCA-33890
     Dosage: 900 MILLIGRAM, DAYS 1 AND 15 OF EACH 28-DAY CYCLE?FOA-INFUSION
     Route: 042
     Dates: start: 20250925
  7. OXALIPLATIN [Suspect]
     Active Substance: OXALIPLATIN
     Indication: Colorectal cancer
     Dosage: 85 MILLIGRAM/SQ. METER, DAYS 1 AND 15 OF EACH 28-DAY CYCLE?DURATION: 2 HRS 18 MIN?FORM OF ADMINISTRA
     Route: 042
  8. OXALIPLATIN [Suspect]
     Active Substance: OXALIPLATIN
     Dosage: 85 MILLIGRAM/SQ. METER, DAYS 1 AND 15 OF EACH 28-DAY CYCLE?DURATION: 2 HRS 16 MIN?FORM OF ADMINISTRA
     Route: 042
  9. OXALIPLATIN [Suspect]
     Active Substance: OXALIPLATIN
     Dosage: 85 MILLIGRAM/SQ. METER, DAYS 1 AND 15 OF EACH 28-DAY CYCLE?DURATION: 1 DAY?FORM OF ADMINISTRATION: I
     Route: 042
     Dates: start: 20250925, end: 20250925
  10. BEVACIZUMAB [Suspect]
     Active Substance: BEVACIZUMAB
     Indication: Colorectal cancer
     Dosage: 5 MILLIGRAM/KILOGRAM, DAYS 1 AND 15 OF EACH 28-DAY CYCLE?DURATION:1 HR 31 MIN?FORM OF ADMINISTRATION
     Route: 042
  11. BEVACIZUMAB [Suspect]
     Active Substance: BEVACIZUMAB
     Dosage: 5 MILLIGRAM/KILOGRAM, DAYS 1 AND 15 OF EACH 28-DAY CYCLE?DURATION:1 HR 1 MIN?FORM OF ADMINISTRATION:
     Route: 042
  12. BEVACIZUMAB [Suspect]
     Active Substance: BEVACIZUMAB
     Dosage: 5 MILLIGRAM/KILOGRAM, DAYS 1 AND 15 OF EACH 28-DAY CYCLE?DURATION:1 DAY?FORM OF ADMINISTRATION: INFU
     Route: 042
     Dates: start: 20250925, end: 20250925
  13. LEUCOVORIN [Suspect]
     Active Substance: LEUCOVORIN\LEUCOVORIN CALCIUM
     Indication: Colorectal cancer
     Dosage: 400 MG/M2: DAYS 1 AND 15 OF EACH 28 DAY CYCLE?DURATION:15 DAYS?FORM OF ADMINISTRATION: INFUSION
     Route: 042
     Dates: start: 20250821, end: 20250904
  14. LEUCOVORIN [Suspect]
     Active Substance: LEUCOVORIN\LEUCOVORIN CALCIUM
     Dosage: 400 MG/M2: DAYS 1 AND 15 OF EACH 28 DAY CYCLE?DURATION:1 DAY?FORM OF ADMINISTRATION: INFUSION
     Route: 042
     Dates: start: 20250925, end: 20250925

REACTIONS (1)
  - Febrile neutropenia [Recovered/Resolved]

NARRATIVE: CASE EVENT DATE: 20250918
